FAERS Safety Report 8837887 (Version 1)
Quarter: 2012Q4

REPORT INFORMATION
  Report Type: 
  Country: US (occurrence: US)
  Receive Date: 20121012
  Receipt Date: 20121012
  Transmission Date: 20130627
  Serious: Yes (Other)
  Sender: FDA-Public Use
  Company Number: US-PFIZER INC-2012252380

PATIENT
  Age: 48 Year
  Sex: Female
  Weight: 91.16 kg

DRUGS (2)
  1. EFFEXOR XR [Suspect]
     Indication: DEPRESSION
     Dosage: UNK, 1x/day
     Route: 048
     Dates: start: 2010
  2. EFFEXOR XR [Suspect]
     Dosage: 225 mg, 1x/day
     Route: 048

REACTIONS (3)
  - Bipolar disorder [Unknown]
  - Panic attack [Unknown]
  - Sleep disorder [Unknown]
